FAERS Safety Report 9759891 (Version 1)
Quarter: 2013Q4

REPORT INFORMATION
  Report Type: Spontaneous
  Country: JP (occurrence: JP)
  Receive Date: 20131216
  Receipt Date: 20131216
  Transmission Date: 20140711
  Serious: Yes (Hospitalization, Other)
  Sender: FDA-Public Use
  Company Number: JP-SA-2013SA127373

PATIENT
  Age: 56 Year
  Sex: Female
  Weight: 52.9 kg

DRUGS (4)
  1. TAXOTERE [Suspect]
     Indication: PRODUCT USED FOR UNKNOWN INDICATION
     Route: 041
     Dates: start: 20131120, end: 20131120
  2. ALOXI [Concomitant]
     Route: 042
  3. DEXART [Concomitant]
  4. CARBOPLATIN [Concomitant]

REACTIONS (3)
  - Feeling hot [Recovered/Resolved]
  - Photopsia [Recovered/Resolved]
  - Dyspnoea [Recovered/Resolved]
